FAERS Safety Report 4349969-4 (Version None)
Quarter: 2004Q2

REPORT INFORMATION
  Report Type: 
  Country: None (occurrence: None)
  Receive Date: 20040428
  Receipt Date: 20040428
  Transmission Date: 20050107
  Serious: Yes (Hospitalization)
  Sender: FDA-Public Use
  Company Number: None

PATIENT
  Sex: Male

DRUGS (11)
  1. GOLYTELY [Suspect]
     Indication: COLONOSCOPY
     Dosage: FLEETS PHOSPHO SODA
  2. BISACODYL 10 MG , 20 MG [Suspect]
     Dosage: FLEETS OIL RETENTION EMEMA
  3. ACETAMINOPHEN [Concomitant]
  4. ACETAINOPHEN/OXYCODONE [Concomitant]
  5. BRIMONIDINE TARTRATE [Concomitant]
  6. DORZOLAMIDE 2%/TIMOLOL [Concomitant]
  7. LEVOTHYROXINE NA (SYNTHOID) [Concomitant]
  8. MORPHINE SULFATE [Concomitant]
  9. RANITIDINE HCL [Concomitant]
  10. SODIUM CHLORIDE INJ [Concomitant]
  11. TEMAZEPAM [Concomitant]

REACTIONS (1)
  - HYPOTENSION [None]
